FAERS Safety Report 8410293 (Version 2)
Quarter: 2013Q3

REPORT INFORMATION
  Report Type: Spontaneous
  Country: US (occurrence: US)
  Receive Date: 20120217
  Receipt Date: 20130830
  Transmission Date: 20140515
  Serious: No
  Sender: FDA-Public Use
  Company Number: US-PFIZER INC-2012039649

PATIENT
  Age: 90 Year
  Sex: Male

DRUGS (3)
  1. GLIPIZIDE [Suspect]
     Dosage: 40 MG, 2X/DAY (10 MG FOUR TABLETS TWICE A DAY)
  2. HYDROCHLOROTHIAZIDE [Suspect]
     Dosage: UNK
  3. ACETYLSALICYLIC ACID [Suspect]
     Dosage: 2 DAILY

REACTIONS (6)
  - Fall [Unknown]
  - Fall [Unknown]
  - Dizziness [Unknown]
  - Pollakiuria [Unknown]
  - Insomnia [Unknown]
  - Blood glucose decreased [Unknown]
